FAERS Safety Report 8192800-X (Version None)
Quarter: 2012Q1

REPORT INFORMATION
  Report Type: 
  Country: None (occurrence: None)
  Receive Date: 20120308
  Receipt Date: 20120229
  Transmission Date: 20120608
  Serious: No
  Sender: FDA-Public Use
  Company Number: US-PFIZER INC-2012058422

PATIENT
  Sex: Female

DRUGS (4)
  1. CELEBREX [Suspect]
     Indication: ARTHRITIS
  2. PRILOSEC [Suspect]
  3. FELDENE [Suspect]
  4. PREVACID [Suspect]

REACTIONS (2)
  - RASH [None]
  - DRUG HYPERSENSITIVITY [None]
